FAERS Safety Report 8807960 (Version 2)
Quarter: 2012Q4

REPORT INFORMATION
  Report Type: 
  Country: BR (occurrence: BR)
  Receive Date: 20120925
  Receipt Date: 20121004
  Transmission Date: 20130627
  Serious: Yes (Disabling, Other)
  Sender: FDA-Public Use
  Company Number: BR-PFIZER INC-2012234733

PATIENT
  Age: 45 Year
  Sex: Female

DRUGS (1)
  1. LYRICA [Suspect]
     Indication: SPINAL COLUMN STENOSIS
     Dosage: 3 tablets strength 75 mg daily
     Route: 048
     Dates: start: 201103

REACTIONS (4)
  - Spinal column stenosis [Unknown]
  - Walking disability [Unknown]
  - Spinal pain [Not Recovered/Not Resolved]
  - Off label use [Unknown]
